FAERS Safety Report 9200036 (Version 2)
Quarter: 2013Q2

REPORT INFORMATION
  Report Type: Report from Study
  Country: CA (occurrence: CA)
  Receive Date: 20130329
  Receipt Date: 20130422
  Transmission Date: 20140414
  Serious: Yes (Death, Other)
  Sender: FDA-Public Use
  Company Number: CA-ABBOTT-13P-028-1069642-00

PATIENT
  Age: 53 Year
  Sex: Male

DRUGS (4)
  1. HUMIRA [Suspect]
     Indication: CROHN^S DISEASE
     Route: 058
     Dates: start: 20121002
  2. VITAMIN B12 [Concomitant]
     Indication: PRODUCT USED FOR UNKNOWN INDICATION
  3. ZYCLARA [Concomitant]
     Indication: PRODUCT USED FOR UNKNOWN INDICATION
  4. UNSPECIFIED [Concomitant]
     Indication: PRODUCT USED FOR UNKNOWN INDICATION

REACTIONS (5)
  - Malaise [Fatal]
  - Peritoneal haemorrhage [Unknown]
  - Shock haemorrhagic [Unknown]
  - Hepatic lesion [Unknown]
  - Hepatic rupture [Unknown]
